FAERS Safety Report 8212940-6 (Version None)
Quarter: 2012Q1

REPORT INFORMATION
  Report Type: 
  Country: None (occurrence: None)
  Receive Date: 20120315
  Receipt Date: 20120307
  Transmission Date: 20120608
  Serious: Yes (Other)
  Sender: FDA-Public Use
  Company Number: GB-US-EMD SERONO, INC.-7108715

PATIENT
  Sex: Female

DRUGS (2)
  1. REBIF [Suspect]
  2. REBIF [Suspect]
     Indication: RELAPSING-REMITTING MULTIPLE SCLEROSIS
     Route: 058
     Dates: start: 20111001, end: 20120123

REACTIONS (7)
  - DYSMENORRHOEA [None]
  - MENSTRUATION IRREGULAR [None]
  - MATERNAL EXPOSURE DURING PREGNANCY [None]
  - INFLUENZA LIKE ILLNESS [None]
  - INJECTION SITE MASS [None]
  - INJECTION SITE HAEMATOMA [None]
  - ABORTION INDUCED [None]
